FAERS Safety Report 8598710-8 (Version None)
Quarter: 2012Q3

REPORT INFORMATION
  Report Type: 
  Country: None (occurrence: None)
  Receive Date: 20120816
  Receipt Date: 20120807
  Transmission Date: 20120928
  Serious: No
  Sender: FDA-Public Use
  Company Number: US-ASTRAZENECA-2012SE55933

PATIENT
  Age: 41 Year
  Sex: Female

DRUGS (2)
  1. CRESTOR [Suspect]
     Route: 048
  2. NEXIUM [Suspect]
     Route: 048

REACTIONS (5)
  - MALAISE [None]
  - ABDOMINAL DISCOMFORT [None]
  - WRONG DRUG ADMINISTERED [None]
  - NAUSEA [None]
  - DRUG DISPENSING ERROR [None]
